FAERS Safety Report 7713424-1 (Version None)
Quarter: 2011Q3

REPORT INFORMATION
  Report Type: 
  Country: None (occurrence: None)
  Receive Date: 20110826
  Receipt Date: 20110816
  Transmission Date: 20111222
  Serious: Yes (Other)
  Sender: FDA-Public Use
  Company Number: US-SANOFI-AVENTIS-2011SA052836

PATIENT
  Age: 73 Year
  Sex: Female

DRUGS (2)
  1. OPTICLICK [Suspect]
     Indication: TYPE 2 DIABETES MELLITUS
     Dates: start: 20080520
  2. LANTUS [Suspect]
     Indication: TYPE 2 DIABETES MELLITUS
     Dosage: 38-50 UNITS
     Route: 058
     Dates: start: 20020101

REACTIONS (3)
  - METASTASES TO LUNG [None]
  - UTERINE CANCER [None]
  - HYPERGLYCAEMIA [None]
